FAERS Safety Report 15438201 (Version 3)
Quarter: 2019Q2

REPORT INFORMATION
  Report Type: Spontaneous
  Country: JP (occurrence: JP)
  Receive Date: 20180928
  Receipt Date: 20190517
  Transmission Date: 20190711
  Serious: Yes (Death, Hospitalization, Other)
  Sender: FDA-Public Use
  Company Number: JP-ASTELLAS-2018JP018102

PATIENT
  Age: 7 Year
  Sex: Male

DRUGS (35)
  1. CYTARABINE. [Suspect]
     Active Substance: CYTARABINE
     Indication: ACUTE MYELOID LEUKAEMIA
     Route: 065
  2. MELPHALAN. [Suspect]
     Active Substance: MELPHALAN
     Indication: BONE MARROW TRANSPLANT
     Route: 065
  3. PREDONINE [Suspect]
     Active Substance: PREDNISOLONE
     Route: 048
     Dates: start: 20151125, end: 20151216
  4. VFEND [Concomitant]
     Active Substance: VORICONAZOLE
     Indication: MYELODYSPLASTIC SYNDROME
     Route: 065
     Dates: start: 20151204, end: 20151208
  5. AMIKACIN. [Concomitant]
     Active Substance: AMIKACIN
     Indication: FEBRILE NEUTROPENIA
     Dosage: 120 MG/DAY, UNKNOWN FREQ.
     Route: 065
     Dates: start: 20151216, end: 20151220
  6. MEROPENEM. [Concomitant]
     Active Substance: MEROPENEM
     Indication: FEBRILE NEUTROPENIA
     Dosage: 1.5 G/DAY, UNKNOWN FREQ.
     Route: 065
     Dates: start: 20151217
  7. CYCLOSPORINE. [Suspect]
     Active Substance: CYCLOSPORINE
     Indication: BEHCET^S SYNDROME
     Dosage: UNK UNK, UNKNOWN FREQ.
     Route: 065
  8. ETOPOSIDE. [Suspect]
     Active Substance: ETOPOSIDE
     Indication: HAEMOPHAGOCYTIC LYMPHOHISTIOCYTOSIS
     Dosage: LOW DOSE, UNKNOWN FREQ.
     Route: 065
  9. METHOTREXATE. [Concomitant]
     Active Substance: METHOTREXATE
     Indication: GRAFT VERSUS HOST DISEASE
     Dosage: UNK UNK, UNKNOWN FREQ.
     Route: 065
  10. DALTEPARIN NA [Concomitant]
     Active Substance: DALTEPARIN SODIUM
     Indication: MYELODYSPLASTIC SYNDROME
     Route: 041
     Dates: start: 20151129, end: 20160108
  11. MIYA-BM [Concomitant]
     Active Substance: CLOSTRIDIUM BUTYRICUM SPORES STRAIN M-55
     Indication: MYELODYSPLASTIC SYNDROME
     Dosage: 1.3 G/DAY, THRICE DAILY
     Route: 048
     Dates: start: 20151123, end: 20151216
  12. PREDONINE [Suspect]
     Active Substance: PREDNISOLONE
     Indication: BEHCET^S SYNDROME
     Dosage: UNK UNK, UNKNOWN FREQ.
     Route: 065
  13. FUNGUARD [Concomitant]
     Active Substance: MICAFUNGIN SODIUM
     Indication: FUNGAL INFECTION
     Dosage: UNK, UNKNOWN FREQ.
     Route: 065
  14. MESALAZINE [Concomitant]
     Active Substance: MESALAMINE
     Indication: BEHCET^S SYNDROME
     Dosage: 500 MG/DAY, THRICE DAILY
     Route: 048
  15. VANCOMYCIN [Concomitant]
     Active Substance: VANCOMYCIN
     Indication: MYELODYSPLASTIC SYNDROME
     Route: 048
     Dates: start: 20151123, end: 20151216
  16. CYCLOSPORINE. [Suspect]
     Active Substance: CYCLOSPORINE
     Indication: GRAFT VERSUS HOST DISEASE
  17. ADALIMUMAB [Suspect]
     Active Substance: ADALIMUMAB
     Indication: BEHCET^S SYNDROME
     Dosage: UNK UNK, UNKNOWN FREQ.
     Route: 065
  18. GLOBULIN (IMMUNOGLOBULIN HUMAN NORMAL) [Concomitant]
     Active Substance: HUMAN IMMUNOGLOBULIN G
     Indication: HAEMOPHAGOCYTIC LYMPHOHISTIOCYTOSIS
     Dosage: 2G/KG, UNKNOWN FREQ.
     Route: 041
  19. ACICLOVIR [Concomitant]
     Active Substance: ACYCLOVIR
     Indication: MYELODYSPLASTIC SYNDROME
     Route: 041
     Dates: start: 20151202, end: 20160115
  20. NEOPHAGEN                          /00467204/ [Concomitant]
     Active Substance: CYSTEINE\GLYCINE\GLYCYRRHIZIN
     Indication: MYELODYSPLASTIC SYNDROME
     Route: 041
  21. FUROSEMIDE. [Concomitant]
     Active Substance: FUROSEMIDE
     Indication: MYELODYSPLASTIC SYNDROME
     Route: 041
     Dates: start: 20151208
  22. POLARAMINE [Concomitant]
     Active Substance: DEXCHLORPHENIRAMINE MALEATE
     Indication: MYELODYSPLASTIC SYNDROME
     Route: 041
     Dates: start: 20151208
  23. BFLUID [Concomitant]
     Active Substance: AMINO ACIDS\DEXTROSE\ELECTROLYTES NOS\VITAMINS
     Indication: MYELODYSPLASTIC SYNDROME
     Route: 041
     Dates: start: 20151207, end: 20151210
  24. ETOPOSIDE. [Suspect]
     Active Substance: ETOPOSIDE
     Indication: ACUTE MYELOID LEUKAEMIA
     Route: 065
  25. MYCOPHENOLATE MOFETIL. [Concomitant]
     Active Substance: MYCOPHENOLATE MOFETIL
     Indication: PRODUCT USED FOR UNKNOWN INDICATION
     Dosage: UNK UNK, UNKNOWN FREQ.
     Route: 065
  26. POLYCARBOPHIL CALCIUM [Concomitant]
     Active Substance: CALCIUM POLYCARBOPHIL
     Indication: BEHCET^S SYNDROME
     Dosage: 0.7 G/DAY, THRICE DAILY
     Route: 048
     Dates: start: 20151010, end: 20151216
  27. CALFINA [Concomitant]
     Active Substance: ALFACALCIDOL
     Indication: BEHCET^S SYNDROME
     Dosage: 0.5 UG, ONCE DAILY
     Route: 048
     Dates: start: 20151014, end: 20151208
  28. BUSULFAN. [Suspect]
     Active Substance: BUSULFAN
     Indication: BONE MARROW TRANSPLANT
     Route: 065
  29. POLYMYXIN B SULFATE. [Concomitant]
     Active Substance: POLYMYXIN B SULFATE
     Indication: MYELODYSPLASTIC SYNDROME
     Route: 048
     Dates: start: 20151123, end: 20151216
  30. ADALIMUMAB [Suspect]
     Active Substance: ADALIMUMAB
     Route: 065
  31. MAXIPIME [Concomitant]
     Active Substance: CEFEPIME HYDROCHLORIDE
     Indication: FEBRILE NEUTROPENIA
     Route: 041
     Dates: start: 20151207, end: 20151216
  32. SODIUM CHLORIDE. [Concomitant]
     Active Substance: SODIUM CHLORIDE
     Indication: MYELODYSPLASTIC SYNDROME
     Dosage: 24 ML/DOSE, 960 ML/DAY, 24-HOUR CONTINUOUS
     Route: 041
     Dates: start: 20151208
  33. PROGRAF [Suspect]
     Active Substance: TACROLIMUS\TACROLIMUS ANHYDROUS
     Indication: PROPHYLAXIS AGAINST GRAFT VERSUS HOST DISEASE
     Dosage: 0.15 MG, CONTINUOUS
     Route: 041
     Dates: start: 20151208, end: 20151220
  34. IDARUBICIN HYDROCHLORIDE. [Suspect]
     Active Substance: IDARUBICIN HYDROCHLORIDE
     Indication: ACUTE MYELOID LEUKAEMIA
     Route: 065
  35. AMPHOTERICIN B. [Concomitant]
     Active Substance: AMPHOTERICIN B
     Indication: FUNGAL INFECTION
     Dosage: 30 MG/DAY, UNKNOWN FREQ.
     Route: 065
     Dates: start: 20151222

REACTIONS (6)
  - Viral haemorrhagic cystitis [Recovered/Resolved]
  - Haemophagocytic lymphohistiocytosis [Unknown]
  - Hypertensive encephalopathy [Recovered/Resolved]
  - Toxic encephalopathy [Recovered/Resolved]
  - Febrile neutropenia [Not Recovered/Not Resolved]
  - Aspergillus infection [Fatal]

NARRATIVE: CASE EVENT DATE: 20151207
